FAERS Safety Report 7559760-3 (Version None)
Quarter: 2011Q2

REPORT INFORMATION
  Report Type: 
  Country: None (occurrence: None)
  Receive Date: 20110621
  Receipt Date: 20110609
  Transmission Date: 20111010
  Serious: Yes (Death)
  Sender: FDA-Public Use
  Company Number: TR-ACTELION-A-CH2011-50045

PATIENT
  Sex: Female
  Weight: 52.5 kg

DRUGS (1)
  1. TRACLEER [Suspect]
     Indication: PULMONARY ARTERIAL HYPERTENSION
     Dosage: 62.5 MG, QD
     Route: 048
     Dates: start: 20100512

REACTIONS (3)
  - MULTI-ORGAN FAILURE [None]
  - BRAIN HYPOXIA [None]
  - POST PROCEDURAL COMPLICATION [None]
